FAERS Safety Report 9832435 (Version 2)
Quarter: 2014Q1

REPORT INFORMATION
  Report Type: Report from Study
  Country: JP (occurrence: JP)
  Receive Date: 20140121
  Receipt Date: 20140121
  Transmission Date: 20141002
  Serious: Yes (Hospitalization, Other)
  Sender: FDA-Public Use
  Company Number: JP-SA-THYM-1003370

PATIENT
  Age: 13 Year
  Sex: Male
  Weight: 27 kg

DRUGS (13)
  1. THYMOGLOBULINE [Suspect]
     Indication: KIDNEY TRANSPLANT REJECTION
     Dosage: 45 MG, QD
     Route: 065
     Dates: start: 20111111, end: 20111115
  2. TACROLIMUS [Suspect]
     Indication: IMMUNOSUPPRESSANT DRUG THERAPY
     Dosage: UNK
     Route: 065
     Dates: start: 20110609
  3. CHLORPHENAMINE MALEATE [Concomitant]
     Indication: PREMEDICATION
     Dosage: UNK
     Dates: start: 20111111, end: 20111115
  4. PARACETAMOL [Concomitant]
     Indication: PREMEDICATION
     Dosage: UNK
     Dates: start: 20111111, end: 20111115
  5. MYCOPHENOLATE MOFETIL [Concomitant]
     Indication: IMMUNOSUPPRESSANT DRUG THERAPY
     Dosage: UNK
     Dates: start: 20110610, end: 20120428
  6. PREDNISOLONE [Concomitant]
     Indication: IMMUNOSUPPRESSANT DRUG THERAPY
     Dosage: UNK
     Dates: start: 20110610
  7. PREDNISOLONE [Concomitant]
     Indication: IMMUNOSUPPRESSANT DRUG THERAPY
     Dosage: UNK
     Dates: start: 20110616
  8. BASILIXIMAB [Concomitant]
     Indication: IMMUNOSUPPRESSANT DRUG THERAPY
     Dosage: UNK
     Dates: start: 20110609, end: 20110609
  9. BASILIXIMAB [Concomitant]
     Indication: IMMUNOSUPPRESSANT DRUG THERAPY
     Dosage: UNK
     Dates: start: 20110613, end: 20110613
  10. REBAMIPIDE [Concomitant]
     Indication: PROPHYLAXIS
     Dosage: UNK
     Dates: start: 20111020, end: 20120514
  11. RABEPRAZOLE SODIUM [Concomitant]
     Indication: PROPHYLAXIS
     Dosage: UNK
     Dates: start: 20111020, end: 20111103
  12. SODIUM BICARBONATE [Concomitant]
     Indication: PROPHYLAXIS
     Dosage: UNK
     Dates: start: 20111107, end: 20120419
  13. LAFUTIDINE [Concomitant]
     Indication: PROPHYLAXIS
     Dosage: UNK
     Dates: start: 20111111, end: 20120514

REACTIONS (3)
  - Haematuria [Recovered/Resolved]
  - Blood creatinine increased [Not Recovered/Not Resolved]
  - Graft loss [Unknown]
